FAERS Safety Report 8478321-5 (Version None)
Quarter: 2012Q2

REPORT INFORMATION
  Report Type: 
  Country: None (occurrence: None)
  Receive Date: 20120629
  Receipt Date: 20120618
  Transmission Date: 20120825
  Serious: No
  Sender: FDA-Public Use
  Company Number: US-TEVA-344151USA

PATIENT
  Age: 73 Year
  Sex: Male

DRUGS (1)
  1. NUVIGIL [Suspect]
     Dosage: 250 MILLIGRAM;
     Route: 048
     Dates: start: 20110101

REACTIONS (1)
  - PSYCHOMOTOR HYPERACTIVITY [None]
